FAERS Safety Report 8619158-3 (Version None)
Quarter: 2012Q3

REPORT INFORMATION
  Report Type: 
  Country: None (occurrence: None)
  Receive Date: 20120824
  Receipt Date: 20120816
  Transmission Date: 20120928
  Serious: Yes (Hospitalization)
  Sender: FDA-Public Use
  Company Number: US-UCBSA-044362

PATIENT
  Age: 38 Year
  Sex: Female
  Weight: 72.57 kg

DRUGS (8)
  1. DILAUDID [Concomitant]
     Dosage: 2 MG/ML Q 3 HRS PRN
     Route: 042
  2. DIFICID [Concomitant]
     Route: 048
  3. VANCOMYCIN [Concomitant]
     Route: 048
  4. FLAGYL [Concomitant]
  5. CIMZIA [Suspect]
     Indication: CROHN'S DISEASE
     Dates: start: 20100510
  6. CIMZIA [Suspect]
     Route: 058
     Dates: start: 20100326, end: 20100426
  7. ZOFRAN [Concomitant]
     Dosage: 4 MG Q 6 HRS PRN
     Route: 042
  8. PHENERGAN HCL [Concomitant]
     Dosage: 12.5 MG/ML Q 4 HRS PRN
     Route: 042

REACTIONS (1)
  - CLOSTRIDIAL INFECTION [None]
